FAERS Safety Report 9134576 (Version 2)
Quarter: 2013Q2

REPORT INFORMATION
  Report Type: Spontaneous
  Country: BR (occurrence: BR)
  Receive Date: 20130304
  Receipt Date: 20130404
  Transmission Date: 20140414
  Serious: Yes (Hospitalization, Other)
  Sender: FDA-Public Use
  Company Number: PHHY2013BR020603

PATIENT
  Sex: Female
  Weight: 60 kg

DRUGS (2)
  1. DIOVAN AMLO [Suspect]
     Indication: BLOOD PRESSURE ABNORMAL
     Dosage: 1 DF, (80MG VAL, 5MG AMLO), DAILY
     Dates: start: 2007
  2. CLONAZEPAM [Concomitant]
     Indication: RELAXATION THERAPY
     Dosage: 1 DF(2MG), DAILY

REACTIONS (6)
  - Influenza [Recovered/Resolved]
  - Myocardial infarction [Recovered/Resolved]
  - Emphysema [Not Recovered/Not Resolved]
  - Wheezing [Recovered/Resolved]
  - Dyspnoea [Recovered/Resolved]
  - Palpitations [Recovered/Resolved]
